FAERS Safety Report 14587471 (Version 1)
Quarter: 2018Q1

REPORT INFORMATION
  Report Type: Report from Study
  Country: CR (occurrence: CR)
  Receive Date: 20180301
  Receipt Date: 20180301
  Transmission Date: 20180509
  Serious: Yes (Other)
  Sender: FDA-Public Use
  Company Number: PHHY2016CR124946

PATIENT
  Age: 58 Year
  Sex: Female
  Weight: 82 kg

DRUGS (6)
  1. TRAMAL [Suspect]
     Active Substance: TRAMADOL
     Indication: HYPERTENSION
     Dosage: UNK
     Route: 065
  2. EUTIROX [Concomitant]
     Active Substance: LEVOTHYROXINE SODIUM
     Indication: PRODUCT USED FOR UNKNOWN INDICATION
     Dosage: UNK
     Route: 065
  3. ENALAPRIL [Concomitant]
     Active Substance: ENALAPRIL
     Indication: PRODUCT USED FOR UNKNOWN INDICATION
     Dosage: 20 MG, QD
     Route: 048
  4. TRAMADOL. [Concomitant]
     Active Substance: TRAMADOL
     Indication: PAIN
     Dosage: UNK UNK, PRN
     Route: 048
  5. GILENYA [Suspect]
     Active Substance: FINGOLIMOD HYDROCHLORIDE
     Indication: MULTIPLE SCLEROSIS
     Dosage: 0.5 MG, QD
     Route: 048
     Dates: start: 2016
  6. SALBUTAMOL [Concomitant]
     Active Substance: ALBUTEROL
     Indication: PRODUCT USED FOR UNKNOWN INDICATION
     Dosage: UNK
     Route: 055

REACTIONS (30)
  - Cholelithiasis [Unknown]
  - Hepatic steatosis [Unknown]
  - Burning sensation [Unknown]
  - Vertigo [Recovered/Resolved]
  - Autonomic nervous system imbalance [Recovered/Resolved]
  - Dyspnoea [Unknown]
  - Migraine [Unknown]
  - Nausea [Unknown]
  - Drug ineffective [Unknown]
  - Micturition urgency [Recovered/Resolved]
  - Visual impairment [Unknown]
  - Hyperhidrosis [Unknown]
  - Feeling hot [Unknown]
  - Blood pressure decreased [Unknown]
  - Transaminases increased [Unknown]
  - Multiple sclerosis relapse [Unknown]
  - Optic neuritis [Unknown]
  - Bleeding time prolonged [Unknown]
  - Somnolence [Unknown]
  - Muscular weakness [Unknown]
  - Dizziness [Unknown]
  - Constipation [Recovered/Resolved]
  - Tremor [Recovered/Resolved]
  - Central nervous system lesion [Unknown]
  - Multiple sclerosis relapse [Recovered/Resolved]
  - Asthenia [Recovered/Resolved]
  - Hypothyroidism [Unknown]
  - Abdominal pain [Unknown]
  - Headache [Unknown]
  - Hypertension [Recovering/Resolving]

NARRATIVE: CASE EVENT DATE: 2016
